FAERS Safety Report 21996652 (Version 1)
Quarter: 2023Q1

REPORT INFORMATION
  Report Type: Spontaneous
  Country: US (occurrence: US)
  Receive Date: 20230215
  Receipt Date: 20230215
  Transmission Date: 20230418
  Serious: No
  Sender: FDA-Public Use
  Company Number: US-ELI_LILLY_AND_COMPANY-US202302004403

PATIENT

DRUGS (1)
  1. MOUNJARO [Suspect]
     Active Substance: TIRZEPATIDE
     Indication: Metabolic syndrome
     Dosage: UNK UNK, UNKNOWN
     Route: 065

REACTIONS (5)
  - Weight decreased [Unknown]
  - Decreased appetite [Unknown]
  - Off label use [Unknown]
  - Eructation [Unknown]
  - Flatulence [Unknown]
